FAERS Safety Report 11753341 (Version 1)
Quarter: 2015Q4

REPORT INFORMATION
  Report Type: Spontaneous
  Country: US (occurrence: None)
  Receive Date: 20151113
  Receipt Date: 20151113
  Transmission Date: 20160304
  Serious: Yes (Other)
  Sender: FDA-Public Use
  Company Number: 15-06-005

PATIENT
  Age: 41 Year
  Sex: Female
  Weight: 49.9 kg

DRUGS (1)
  1. NAPROXEN SODIUM CAPLETS 220 MG [Suspect]
     Active Substance: NAPROXEN SODIUM
     Indication: PAIN
     Route: 048

REACTIONS (1)
  - Tinnitus [None]

NARRATIVE: CASE EVENT DATE: 20150630
